FAERS Safety Report 8018242-5 (Version None)
Quarter: 2012Q1

REPORT INFORMATION
  Report Type: 
  Country: None (occurrence: None)
  Receive Date: 20120103
  Receipt Date: 20111223
  Transmission Date: 20120608
  Serious: Yes (Other)
  Sender: FDA-Public Use
  Company Number: GB-BAYER-2011-106010

PATIENT
  Age: 43 Year
  Sex: Female

DRUGS (1)
  1. MIRENA [Suspect]
     Indication: MENORRHAGIA
     Dosage: 20 MCG/24HR, CONT
     Route: 015
     Dates: start: 20100401

REACTIONS (22)
  - FATIGUE [None]
  - PAINFUL RESPIRATION [None]
  - DRUG HYPERSENSITIVITY [None]
  - PRURITUS [None]
  - ERYTHEMA [None]
  - BACK PAIN [None]
  - VAGINITIS BACTERIAL [None]
  - PELVIC PAIN [None]
  - FEELING ABNORMAL [None]
  - URINARY TRACT INFECTION [None]
  - VAGINAL DISCHARGE [None]
  - DYSPEPSIA [None]
  - HEADACHE [None]
  - ABDOMINAL DISTENSION [None]
  - CHEST PAIN [None]
  - ALOPECIA [None]
  - BARTHOLIN'S CYST [None]
  - DEPRESSED MOOD [None]
  - AFFECT LABILITY [None]
  - COITAL BLEEDING [None]
  - BURNING SENSATION [None]
  - GROIN PAIN [None]
